FAERS Safety Report 7774352-9 (Version None)
Quarter: 2011Q3

REPORT INFORMATION
  Report Type: 
  Country: None (occurrence: None)
  Receive Date: 20110923
  Receipt Date: 20110629
  Transmission Date: 20111222
  Serious: Yes (Hospitalization)
  Sender: FDA-Public Use
  Company Number: PHHY2011US58969

PATIENT
  Age: 24 Year
  Sex: Female

DRUGS (23)
  1. PREDNISONE [Concomitant]
     Dosage: UNK
  2. IBUPROFEN [Concomitant]
     Dosage: UNK
  3. ACETAMINOPHEN [Concomitant]
     Dosage: UNK
  4. EXTAVIA [Suspect]
     Dosage: UNK
     Route: 058
  5. TOPIRAMATE [Concomitant]
     Dosage: UNK
  6. GLATIRAMER ACETATE [Concomitant]
     Dosage: UNK
  7. ASPIRIN [Concomitant]
     Dosage: UNK
  8. VERAPAMIL [Concomitant]
     Dosage: UNK
  9. NATALIZUMAB [Concomitant]
     Dosage: UNK
  10. NAPROXEN [Concomitant]
     Dosage: UNK
  11. SUMATRIPTAN SUCCINATE [Concomitant]
     Dosage: UNK
  12. METHYLPREDNISOLONE [Concomitant]
     Dosage: UNK
  13. AMITRIPTYLINE HCL [Concomitant]
     Dosage: UNK
  14. AZITHROMYCIN [Concomitant]
     Dosage: UNK
  15. ALPRAZOLAM [Concomitant]
     Dosage: UNK
  16. CLONAZEPAM [Concomitant]
     Dosage: UNK
  17. MYCOPHENOLATE SODIUM [Concomitant]
     Dosage: UNK
  18. GILENYA [Suspect]
     Dosage: UNK UKN, UNK
  19. AMINOPYRIDINE [Concomitant]
     Dosage: UNK
  20. INTERFERON BETA-1A [Concomitant]
     Dosage: UNK
     Route: 030
  21. OXYGEN THERAPY [Concomitant]
     Dosage: UNK
  22. GABAPENTIN [Concomitant]
     Dosage: UNK
  23. LEVOFLOXACIN [Concomitant]
     Dosage: UNK

REACTIONS (3)
  - VITAMIN B12 DEFICIENCY [None]
  - OPTIC NEURITIS [None]
  - VITAMIN D DEFICIENCY [None]
